FAERS Safety Report 4716642-X (Version None)
Quarter: 2005Q3

REPORT INFORMATION
  Report Type: 
  Country: None (occurrence: None)
  Receive Date: 20050718
  Receipt Date: 20050707
  Transmission Date: 20060218
  Serious: Yes (Other)
  Sender: FDA-Public Use
  Company Number: GXKR2005AT01314

PATIENT
  Age: 28 Year
  Sex: Male
  Weight: 88 kg

DRUGS (1)
  1. OSPEN (NGX)(PHENOXYMETHYLPENICILLIN POTASSIUM) FILM-COATED TABLET, 150 [Suspect]
     Indication: PHARYNGITIS
     Dosage: 1500 MG, ONCE/SINGLE, ORAL
     Route: 048
     Dates: start: 20050705, end: 20050705

REACTIONS (3)
  - CIRCULATORY COLLAPSE [None]
  - LOSS OF CONSCIOUSNESS [None]
  - PRURITUS [None]
